FAERS Safety Report 5554532-3 (Version None)
Quarter: 2007Q4

REPORT INFORMATION
  Report Type: 
  Country: None (occurrence: None)
  Receive Date: 20071130
  Receipt Date: 20070916
  Transmission Date: 20080405
  Serious: No
  Sender: FDA-Public Use
  Company Number: 2007PV030990

PATIENT
  Age: 54 Year
  Sex: Female
  Weight: 96.2 kg

DRUGS (7)
  1. EXENATIDE(EXENATIDE) PEN,DISPOSABLE [Suspect]
     Indication: TYPE 2 DIABETES MELLITUS
     Dosage: 5 UG, 2/D, SUBCUTANEOUS
     Route: 058
     Dates: start: 20060701
  2. EXENATIDE(EXENATIDE) PEN,DISPOSABLE [Suspect]
     Dosage: 5 UG, 2/D, SUBCUTANEOUS
     Route: 058
     Dates: start: 20060701
  3. EXENATIDE 5MCG PEN, DISPOSABLE DEVICE (EXENATIDE PEN (5MCG)) PEN,DISPO [Concomitant]
  4. AVANDIA [Concomitant]
  5. GLUCOVANCE /01182201/ (GLIBENCLAMIDE, METFORMIN HYDROCHLORIDE) [Concomitant]
  6. LIPITOR [Concomitant]
  7. PRINIVIL [Concomitant]

REACTIONS (5)
  - ABDOMINAL PAIN UPPER [None]
  - DUODENITIS [None]
  - GASTRITIS [None]
  - LIPASE INCREASED [None]
  - WEIGHT DECREASED [None]
